FAERS Safety Report 18878913 (Version 6)
Quarter: 2022Q4

REPORT INFORMATION
  Report Type: Report from Study
  Country: US (occurrence: US)
  Receive Date: 20210211
  Receipt Date: 20221118
  Transmission Date: 20230112
  Serious: Yes (Hospitalization, Other)
  Sender: FDA-Public Use
  Company Number: US-TAKEDA-US202012457

PATIENT
  Sex: Female
  Weight: 59 kg

DRUGS (38)
  1. HUMAN IMMUNOGLOBULIN G [Suspect]
     Active Substance: HUMAN IMMUNOGLOBULIN G
     Indication: Immunodeficiency common variable
     Dosage: 30 GRAM, Q3WEEKS
     Route: 042
     Dates: start: 20190803
  2. DIPHENHYDRAMINE [Concomitant]
     Active Substance: DIPHENHYDRAMINE
     Indication: Product used for unknown indication
  3. ACETAMINOPHEN [Concomitant]
     Active Substance: ACETAMINOPHEN
     Indication: Product used for unknown indication
  4. ACETAMINOPHEN [Concomitant]
     Active Substance: ACETAMINOPHEN
     Indication: Product used for unknown indication
  5. HEPARIN [Concomitant]
     Active Substance: HEPARIN SODIUM
     Indication: Product used for unknown indication
  6. SODIUM CHLORIDE [Concomitant]
     Active Substance: SODIUM CHLORIDE
     Indication: Product used for unknown indication
  7. COUMADIN [Concomitant]
     Active Substance: WARFARIN SODIUM
     Indication: Product used for unknown indication
  8. COUMADIN [Concomitant]
     Active Substance: WARFARIN SODIUM
     Indication: Product used for unknown indication
  9. RECLAST [Concomitant]
     Active Substance: ZOLEDRONIC ACID
     Indication: Product used for unknown indication
  10. GLUCOPHAGE [Concomitant]
     Active Substance: METFORMIN HYDROCHLORIDE
     Indication: Product used for unknown indication
  11. AMOXICILLIN [Concomitant]
     Active Substance: AMOXICILLIN
     Indication: Product used for unknown indication
  12. METOPROLOL [Concomitant]
     Active Substance: METOPROLOL
     Indication: Product used for unknown indication
  13. CRESTOR [Concomitant]
     Active Substance: ROSUVASTATIN CALCIUM
     Indication: Product used for unknown indication
  14. CRESTOR [Concomitant]
     Active Substance: ROSUVASTATIN CALCIUM
     Indication: Product used for unknown indication
  15. CALCIUM [Concomitant]
     Active Substance: CALCIUM
     Indication: Product used for unknown indication
  16. CALCIUM [Concomitant]
     Active Substance: CALCIUM
     Indication: Product used for unknown indication
  17. VITAMIN D2 [Concomitant]
     Active Substance: ERGOCALCIFEROL
     Indication: Product used for unknown indication
  18. VITAMIN D2 [Concomitant]
     Active Substance: ERGOCALCIFEROL
     Indication: Product used for unknown indication
  19. VITAMIN D3 [Concomitant]
     Active Substance: CHOLECALCIFEROL
     Indication: Product used for unknown indication
  20. VITAMIN D3 [Concomitant]
     Active Substance: CHOLECALCIFEROL
     Indication: Product used for unknown indication
  21. CITALOPRAM [Concomitant]
     Active Substance: CITALOPRAM HYDROBROMIDE
     Indication: Product used for unknown indication
  22. CITALOPRAM [Concomitant]
     Active Substance: CITALOPRAM HYDROBROMIDE
     Indication: Product used for unknown indication
  23. MOMETASONE [Concomitant]
     Active Substance: MOMETASONE
     Indication: Product used for unknown indication
  24. MOMETASONE [Concomitant]
     Active Substance: MOMETASONE
     Indication: Product used for unknown indication
  25. DIGOX [Concomitant]
     Active Substance: DIGOXIN
     Indication: Product used for unknown indication
  26. DIGITEK [Concomitant]
     Active Substance: DIGOXIN
     Indication: Product used for unknown indication
  27. DIGITEK [Concomitant]
     Active Substance: DIGOXIN
     Indication: Product used for unknown indication
  28. EPINEPHRINE [Concomitant]
     Active Substance: EPINEPHRINE
     Indication: Product used for unknown indication
  29. EPINEPHRINE [Concomitant]
     Active Substance: EPINEPHRINE
     Indication: Product used for unknown indication
  30. Lmx [Concomitant]
     Indication: Product used for unknown indication
     Route: 065
  31. TYLENOL [Concomitant]
     Active Substance: ACETAMINOPHEN
     Indication: Product used for unknown indication
  32. MOMETASONE FUROATE [Concomitant]
     Active Substance: MOMETASONE FUROATE
     Indication: Product used for unknown indication
  33. FUROSEMIDE [Concomitant]
     Active Substance: FUROSEMIDE
     Route: 065
  34. WARFARIN SODIUM [Concomitant]
     Active Substance: WARFARIN SODIUM
     Route: 065
  35. ASPIRIN [Concomitant]
     Active Substance: ASPIRIN
     Route: 065
  36. DOCUSATE SODIUM [Concomitant]
     Active Substance: DOCUSATE SODIUM
     Route: 065
  37. DIGOXIN [Concomitant]
     Active Substance: DIGOXIN
  38. METOPROLOL TARTRATE [Concomitant]
     Active Substance: METOPROLOL TARTRATE

REACTIONS (12)
  - Pneumonia [Unknown]
  - Pulmonary oedema [Unknown]
  - Retching [Unknown]
  - Infusion related reaction [Unknown]
  - Cyanosis [Unknown]
  - Infusion site extravasation [Unknown]
  - Infusion site erythema [Unknown]
  - Infusion site swelling [Unknown]
  - Abdominal pain [Unknown]
  - Dizziness [Unknown]
  - Heart rate decreased [Unknown]
  - Inappropriate schedule of product administration [Unknown]
